FAERS Safety Report 21451590 (Version 1)
Quarter: 2022Q4

REPORT INFORMATION
  Report Type: Spontaneous
  Country: US (occurrence: None)
  Receive Date: 20221012
  Receipt Date: 20221012
  Transmission Date: 20230113
  Serious: Yes (Life-Threatening, Disabling, Other)
  Sender: FDA-Public Use
  Company Number: None

PATIENT
  Age: 25 Year
  Sex: Female
  Weight: 42.75 kg

DRUGS (1)
  1. ALPRAZOLAM [Suspect]
     Active Substance: ALPRAZOLAM
     Indication: Insomnia
     Dosage: FREQUENCY : AS NEEDED; 1 TABLET?
     Route: 048
     Dates: start: 20130805, end: 20151029

REACTIONS (24)
  - Flatulence [None]
  - Constipation [None]
  - Abdominal pain [None]
  - Appetite disorder [None]
  - Vision blurred [None]
  - Night blindness [None]
  - Myalgia [None]
  - Fatigue [None]
  - Malaise [None]
  - Blepharospasm [None]
  - Motion sickness [None]
  - Seasonal allergy [None]
  - Headache [None]
  - Initial insomnia [None]
  - Nightmare [None]
  - Hyperhidrosis [None]
  - Amnesia [None]
  - Reading disorder [None]
  - Disturbance in attention [None]
  - Irritability [None]
  - Anhedonia [None]
  - Anxiety [None]
  - Depressed level of consciousness [None]
  - Loss of personal independence in daily activities [None]

NARRATIVE: CASE EVENT DATE: 20151029
